FAERS Safety Report 7572013-2 (Version None)
Quarter: 2011Q2

REPORT INFORMATION
  Report Type: 
  Country: None (occurrence: None)
  Receive Date: 20110624
  Receipt Date: 20110616
  Transmission Date: 20111010
  Serious: Yes (Hospitalization, Disabling)
  Sender: FDA-Public Use
  Company Number: US-B.I. PHARMACEUTICALS,INC./RIDGEFIELD-2010-BP-10859BP

PATIENT
  Sex: Female
  Weight: 45.9 kg

DRUGS (8)
  1. DABIGATRAN [Suspect]
     Indication: CEREBROVASCULAR ACCIDENT PROPHYLAXIS
     Route: 048
     Dates: start: 20070629, end: 20100924
  2. DILTIAZEM [Concomitant]
     Indication: HYPERTENSION
     Dosage: 300 MG
     Route: 048
     Dates: start: 20050325
  3. OMEPRAZOLE [Concomitant]
     Indication: GASTROOESOPHAGEAL REFLUX DISEASE
     Dosage: 20 MG
     Route: 048
     Dates: start: 20080515
  4. EVISTA [Concomitant]
     Indication: OSTEOPOROSIS
     Dosage: 60 MG
     Route: 048
     Dates: start: 20050411
  5. DABIGATRAN [Suspect]
     Indication: ATRIAL FIBRILLATION
  6. TRIAMTERENE [Concomitant]
     Indication: HYPERTENSION
     Dosage: 37.5 MG
     Route: 048
     Dates: start: 20100527
  7. HYDROCHLOROTHIAZIDE [Concomitant]
     Indication: HYPERTENSION
     Dosage: 25 MG
     Route: 048
     Dates: start: 20100527
  8. LANOXIN [Concomitant]
     Indication: ATRIAL FIBRILLATION
     Dosage: 0.125 MG
     Route: 048
     Dates: start: 20050405

REACTIONS (1)
  - EMBOLIC STROKE [None]
